FAERS Safety Report 12989978 (Version 5)
Quarter: 2017Q2

REPORT INFORMATION
  Report Type: Spontaneous
  Country: US (occurrence: US)
  Receive Date: 20161201
  Receipt Date: 20170628
  Transmission Date: 20170830
  Serious: No
  Sender: FDA-Public Use
  Company Number: US-PFIZER INC-2016556286

PATIENT
  Age: 52 Year
  Sex: Female

DRUGS (7)
  1. LYRICA [Suspect]
     Active Substance: PREGABALIN
     Dosage: 150 MG, 3X/DAY
     Route: 048
  2. LYRICA [Suspect]
     Active Substance: PREGABALIN
     Dosage: 75 MG, 2X/DAY
     Route: 048
     Dates: start: 201603
  3. NAPROXEN. [Concomitant]
     Active Substance: NAPROXEN
     Indication: NEURALGIA
     Dosage: 500 MG, UNK
     Dates: start: 20160218
  4. LYRICA [Suspect]
     Active Substance: PREGABALIN
     Indication: NEURALGIA
     Dosage: 75-100 MG, 3X/DAY
     Route: 048
     Dates: start: 201602
  5. IBUPROFEN. [Concomitant]
     Active Substance: IBUPROFEN
     Indication: NEURALGIA
     Dosage: 800 MG, DAILY
     Dates: start: 20160421
  6. HYDROCODONE [Concomitant]
     Active Substance: HYDROCODONE
     Dosage: 7.5-325
     Dates: start: 201602
  7. NAPROXEN. [Concomitant]
     Active Substance: NAPROXEN
     Indication: SWELLING

REACTIONS (3)
  - Drug intolerance [Unknown]
  - Fatigue [Unknown]
  - Blood pressure abnormal [Unknown]
